FAERS Safety Report 22603139 (Version 1)
Quarter: 2023Q2

REPORT INFORMATION
  Report Type: Spontaneous
  Country: US (occurrence: US)
  Receive Date: 20230615
  Receipt Date: 20230615
  Transmission Date: 20230722
  Serious: Yes (Other)
  Sender: FDA-Public Use
  Company Number: US-SA-2023SA181135

PATIENT
  Age: 5 Year
  Sex: Male

DRUGS (2)
  1. ELOCTATE [Suspect]
     Active Substance: EFMOROCTOCOG ALFA
     Dosage: 750 IU
     Route: 065
  2. ELOCTATE [Suspect]
     Active Substance: EFMOROCTOCOG ALFA
     Dosage: 750 IU
     Route: 065

REACTIONS (3)
  - Haemorrhage [Recovered/Resolved]
  - Fall [Unknown]
  - Mass [Unknown]

NARRATIVE: CASE EVENT DATE: 20230524
